FAERS Safety Report 10559941 (Version 1)
Quarter: 2014Q4

REPORT INFORMATION
  Report Type: Spontaneous
  Country: US (occurrence: None)
  Receive Date: 20141030
  Receipt Date: 20141030
  Transmission Date: 20150529
  Serious: Yes (Life-Threatening, Hospitalization)
  Sender: FDA-Public Use
  Company Number: US2014GSK010150

PATIENT
  Sex: Male

DRUGS (2)
  1. EPZICOM [Suspect]
     Active Substance: ABACAVIR SULFATE\LAMIVUDINE
     Indication: HIV INFECTION
  2. PROTEASE INHIBITOR (PROTEASE INHIBITOR NOS, PROTEASE INHIBITOR NOS) [Concomitant]

REACTIONS (2)
  - Adverse drug reaction [None]
  - Hypersensitivity [None]

NARRATIVE: CASE EVENT DATE: 2012
